FAERS Safety Report 9087446 (Version 1)
Quarter: 2013Q1

REPORT INFORMATION
  Report Type: Report from Study
  Country: US (occurrence: US)
  Receive Date: 20130201
  Receipt Date: 20130201
  Transmission Date: 20140127
  Serious: No
  Sender: FDA-Public Use
  Company Number: US-ABBOTT-12P-163-0909001-00

PATIENT
  Age: 40 Year
  Sex: Female

DRUGS (27)
  1. HUMIRA [Suspect]
     Indication: CROHN^S DISEASE
     Dosage: LOADING DOSE OF 4 INJECTIONS
     Dates: start: 20120220, end: 20120220
  2. HUMIRA [Suspect]
     Dates: start: 20120305
  3. HUMIRA [Suspect]
  4. CHOLESTYRAMINE [Concomitant]
     Indication: PRODUCT USED FOR UNKNOWN INDICATION
     Dosage: DAILY; IN THE EVENING
  5. OMEPRAZOLE [Concomitant]
     Indication: DYSPEPSIA
     Dosage: 2 TABS
  6. PENTASA [Concomitant]
     Indication: CROHN^S DISEASE
     Dosage: 2 TABS TID
  7. SINGULAIR [Concomitant]
     Indication: HYPERSENSITIVITY
     Dosage: DAILY
  8. POTASSIUM [Concomitant]
     Indication: PRODUCT USED FOR UNKNOWN INDICATION
     Dosage: ER CAPS; DAILY
  9. NABUMETONE [Concomitant]
     Indication: PRODUCT USED FOR UNKNOWN INDICATION
  10. NEURONTIN [Concomitant]
     Indication: HYPOAESTHESIA
     Dosage: TID
  11. TRAMADOL [Concomitant]
     Indication: PAIN
  12. EFFEXOR [Concomitant]
     Indication: DEPRESSION
  13. PEPCID AC [Concomitant]
     Indication: DYSPEPSIA
     Dosage: 2 TABS DAILY
  14. HYOSCYAMINE [Concomitant]
     Indication: PRODUCT USED FOR UNKNOWN INDICATION
  15. ENTOCORT [Concomitant]
     Indication: CROHN^S DISEASE
  16. CYCLOBENZAPRINE [Concomitant]
     Indication: PRODUCT USED FOR UNKNOWN INDICATION
  17. MOTILIUM [Concomitant]
     Indication: DYSPEPSIA
     Dosage: 7 TABS A DAY
  18. LASIX [Concomitant]
     Indication: SWELLING
  19. FLEXERIL [Concomitant]
     Indication: FIBROMYALGIA
     Dosage: 4 TABS A DAY
  20. FLEXERIL [Concomitant]
     Indication: INTERVERTEBRAL DISC PROTRUSION
  21. FLEXERIL [Concomitant]
     Indication: VULVITIS
  22. MELATONIN [Concomitant]
     Indication: INSOMNIA
     Dosage: 2 TABS HS
  23. CELESTAMINE [Concomitant]
     Indication: DYSPEPSIA
     Dosage: ONE PACK AT NIGHT
  24. HYDROXYSTIM [Concomitant]
     Indication: GASTRIC DISORDER
     Dosage: TWO TABS Q DAY
  25. HYDROXYSTIM [Concomitant]
     Indication: CROHN^S DISEASE
  26. RISPERDAL [Concomitant]
     Indication: PRODUCT USED FOR UNKNOWN INDICATION
     Dates: start: 201204
  27. RISPERDAL [Concomitant]

REACTIONS (14)
  - Injection site discolouration [Not Recovered/Not Resolved]
  - Injection site bruising [Not Recovered/Not Resolved]
  - Injection site pain [Recovered/Resolved]
  - Nausea [Recovered/Resolved]
  - Injection site swelling [Not Recovered/Not Resolved]
  - Injection site erythema [Not Recovered/Not Resolved]
  - Injection site pain [Not Recovered/Not Resolved]
  - Injection site erythema [Not Recovered/Not Resolved]
  - Injection site discolouration [Not Recovered/Not Resolved]
  - Incorrect dose administered [Unknown]
  - Injection site pain [Not Recovered/Not Resolved]
  - Injection site pruritus [Not Recovered/Not Resolved]
  - Bipolar disorder [Recovered/Resolved]
  - Obsessive-compulsive disorder [Recovered/Resolved]
